FAERS Safety Report 4803231-1 (Version None)
Quarter: 2005Q4

REPORT INFORMATION
  Report Type: 
  Country: None (occurrence: None)
  Receive Date: 20051013
  Receipt Date: 20030117
  Transmission Date: 20060501
  Serious: Yes (Other)
  Sender: FDA-Public Use
  Company Number: 002-03

PATIENT
  Age: 37 Year
  Sex: Female
  Weight: 81.6475 kg

DRUGS (2)
  1. TIZANIDINE HCL [Suspect]
     Indication: MULTIPLE SCLEROSIS
     Dosage: 4MG ONCE OR TWICE DAILY
     Dates: start: 20030117, end: 20030117
  2. TIZANIDINE HCL [Suspect]
     Indication: MUSCLE SPASMS
     Dosage: 4MG ONCE OR TWICE DAILY
     Dates: start: 20030117, end: 20030117

REACTIONS (2)
  - HYPERSENSITIVITY [None]
  - SWELLING [None]
